FAERS Safety Report 24863403 (Version 1)
Quarter: 2025Q1

REPORT INFORMATION
  Report Type: Spontaneous
  Country: US (occurrence: US)
  Receive Date: 20250120
  Receipt Date: 20250120
  Transmission Date: 20250409
  Serious: Yes (Death, Hospitalization, Other)
  Sender: TAKEDA
  Company Number: US-TAKEDA-2025TUS004929

PATIENT
  Age: 47 Year
  Sex: Female
  Weight: 77.6 kg

DRUGS (28)
  1. PONATINIB [Suspect]
     Active Substance: PONATINIB
     Indication: Product used for unknown indication
  2. JAKAFI [Suspect]
     Active Substance: RUXOLITINIB
     Indication: Haemophagocytic lymphohistiocytosis
  3. JAKAFI [Suspect]
     Active Substance: RUXOLITINIB
     Dosage: 20 MILLIGRAM, BID
  4. RUXOLITINIB [Suspect]
     Active Substance: RUXOLITINIB
     Indication: Haemophagocytic lymphohistiocytosis
     Dosage: 10 MILLIGRAM, BID
     Dates: start: 20241120, end: 20241129
  5. AMLODIPINE [Concomitant]
     Active Substance: AMLODIPINE BESYLATE
  6. ATOVAQUONE [Concomitant]
     Active Substance: ATOVAQUONE
  7. CETIRIZINE [Concomitant]
     Active Substance: CETIRIZINE HYDROCHLORIDE
  8. ERGOCALCIFEROL [Concomitant]
     Active Substance: ERGOCALCIFEROL
  9. FAMOTIDINE [Concomitant]
     Active Substance: FAMOTIDINE
  10. FLUTICASONE [Concomitant]
     Active Substance: FLUTICASONE
  11. GABAPENTIN [Concomitant]
     Active Substance: GABAPENTIN
  12. INSULIN LISPRO [Concomitant]
     Active Substance: INSULIN LISPRO
  13. ALBUTEROL\IPRATROPIUM [Concomitant]
     Active Substance: ALBUTEROL\IPRATROPIUM
  14. LIDOCAINE [Concomitant]
     Active Substance: LIDOCAINE
  15. LORAZEPAM [Concomitant]
     Active Substance: LORAZEPAM
  16. METFORMIN [Concomitant]
     Active Substance: METFORMIN HYDROCHLORIDE
  17. ONDANSETRON [Concomitant]
     Active Substance: ONDANSETRON
  18. OXYCODONE [Concomitant]
     Active Substance: OXYCODONE
  19. POSACONAZOLE [Concomitant]
     Active Substance: POSACONAZOLE
  20. QUETIAPINE [Concomitant]
     Active Substance: QUETIAPINE
  21. RAMELTEON [Concomitant]
     Active Substance: RAMELTEON
  22. CYCLOPHOSPHAMIDE [Concomitant]
     Active Substance: CYCLOPHOSPHAMIDE
     Indication: Blast crisis in myelogenous leukaemia
  23. CYTARABINE [Concomitant]
     Active Substance: CYTARABINE
     Indication: Blast crisis in myelogenous leukaemia
  24. DEXAMETHASONE [Concomitant]
     Active Substance: DEXAMETHASONE
     Indication: Blast crisis in myelogenous leukaemia
  25. DOXORUBICIN [Concomitant]
     Active Substance: DOXORUBICIN
     Indication: Blast crisis in myelogenous leukaemia
  26. METHOTREXATE [Concomitant]
     Active Substance: METHOTREXATE
     Indication: Blast crisis in myelogenous leukaemia
  27. RITUXIMAB [Concomitant]
     Active Substance: RITUXIMAB
     Indication: Blast crisis in myelogenous leukaemia
  28. VINCRISTINE [Concomitant]
     Active Substance: VINCRISTINE
     Indication: Blast crisis in myelogenous leukaemia

REACTIONS (3)
  - Respiratory failure [Fatal]
  - Pneumonitis [Unknown]
  - Pulmonary alveolar haemorrhage [Unknown]

NARRATIVE: CASE EVENT DATE: 20240701
